FAERS Safety Report 8429431-X (Version None)
Quarter: 2012Q2

REPORT INFORMATION
  Report Type: 
  Country: None (occurrence: None)
  Receive Date: 20120612
  Receipt Date: 20120516
  Transmission Date: 20120825
  Serious: Yes (Other)
  Sender: FDA-Public Use
  Company Number: JP-UCBSA-054199

PATIENT
  Age: 22 Year
  Sex: Male

DRUGS (4)
  1. PROTOPIC [Concomitant]
     Route: 061
     Dates: start: 20120203
  2. HIRUDOID [Concomitant]
     Route: 061
     Dates: start: 20120127
  3. XYZAL [Suspect]
     Indication: DERMATITIS ATOPIC
     Route: 048
     Dates: start: 20120125, end: 20120223
  4. ANTEBATE [Concomitant]
     Indication: DERMATITIS ATOPIC
     Route: 061
     Dates: start: 20120127

REACTIONS (4)
  - BLOOD LACTATE DEHYDROGENASE INCREASED [None]
  - ASPARTATE AMINOTRANSFERASE INCREASED [None]
  - ALANINE AMINOTRANSFERASE INCREASED [None]
  - HEPATIC FUNCTION ABNORMAL [None]
